FAERS Safety Report 10162860 (Version 3)
Quarter: 2014Q4

REPORT INFORMATION
  Report Type: Spontaneous
  Country: JP (occurrence: JP)
  Receive Date: 20140509
  Receipt Date: 20141119
  Transmission Date: 20150528
  Serious: Yes (Hospitalization)
  Sender: FDA-Public Use
  Company Number: PHHY2014JP056315

PATIENT
  Age: 61 Year
  Sex: Male

DRUGS (2)
  1. DENOSUMAB [Suspect]
     Active Substance: DENOSUMAB
     Indication: HYPERCALCAEMIA
     Dosage: 120 MG, UNK
     Route: 065
  2. ZOMETA [Suspect]
     Active Substance: ZOLEDRONIC ACID
     Indication: HYPERCALCAEMIA
     Dosage: 4 MG, QW
     Route: 065
     Dates: start: 201310, end: 201401

REACTIONS (12)
  - Hypophosphataemia [Recovering/Resolving]
  - Metabolic acidosis [Recovering/Resolving]
  - Myalgia [Recovered/Resolved]
  - Hypouricaemia [Recovering/Resolving]
  - Blood calcium decreased [Unknown]
  - Proteinuria [Recovered/Resolved]
  - Aminoaciduria [Recovering/Resolving]
  - Renal impairment [Recovered/Resolved]
  - Fanconi syndrome [Recovered/Resolved]
  - Blood calcium increased [Recovering/Resolving]
  - Tetany [Recovered/Resolved]
  - Hypokalaemia [Recovering/Resolving]

NARRATIVE: CASE EVENT DATE: 201401
